FAERS Safety Report 11720722 (Version 5)
Quarter: 2024Q4

REPORT INFORMATION
  Report Type: Spontaneous
  Country: BE (occurrence: BE)
  Receive Date: 20151110
  Receipt Date: 20241209
  Transmission Date: 20250115
  Serious: Yes (Death, Life-Threatening, Hospitalization, Other)
  Sender: SANOFI AVENTIS
  Company Number: BE-SA-2015SA179256

PATIENT
  Age: 32 Year
  Sex: Female

DRUGS (12)
  1. THYMOGLOBULIN [Suspect]
     Active Substance: LAPINE T-LYMPHOCYTE IMMUNE GLOBULIN
     Indication: Renal transplant
     Dosage: UNK UNK,UNK
  2. MYCOPHENOLATE MOFETIL [Suspect]
     Active Substance: MYCOPHENOLATE MOFETIL
     Indication: Renal and pancreas transplant
     Dosage: 500 MG,BID
  3. MYCOPHENOLATE MOFETIL [Suspect]
     Active Substance: MYCOPHENOLATE MOFETIL
     Dosage: MYCOPHENOLATE MOFETIL WAS REPLACED BY MYCOPHENOLATE MOFETIL DELAYED-RELEASE TABLETS
  4. METHYLPREDNISOLONE [Suspect]
     Active Substance: METHYLPREDNISOLONE
     Indication: Renal and pancreas transplant
     Dosage: 4 MG,QD
  5. CYCLOPHOSPHAMIDE [Suspect]
     Active Substance: CYCLOPHOSPHAMIDE
     Indication: Post transplant lymphoproliferative disorder
     Dosage: UNK
  6. ADRIAMYCIN [Suspect]
     Active Substance: DOXORUBICIN HYDROCHLORIDE
     Indication: Post transplant lymphoproliferative disorder
     Dosage: UNK UNK,UNK
  7. RITUXIMAB [Suspect]
     Active Substance: RITUXIMAB
     Indication: Post transplant lymphoproliferative disorder
     Dosage: UNK UNK,UNK
  8. TACROLIMUS [Suspect]
     Active Substance: TACROLIMUS
     Indication: Renal and pancreas transplant
     Dosage: 14 MG,QD
  9. TACROLIMUS [Suspect]
     Active Substance: TACROLIMUS
     Dosage: UNK, DOSE REDUCED BY HALF
  10. SULFAMETHOXAZOLE\TRIMETHOPRIM [Concomitant]
     Active Substance: SULFAMETHOXAZOLE\TRIMETHOPRIM
     Dosage: 800 MG, TIW
  11. RANITIDINE [Concomitant]
     Active Substance: RANITIDINE
     Dosage: 150 MG,QD
  12. ASPIRIN [Concomitant]
     Active Substance: ASPIRIN
     Dosage: 100 MG,QD

REACTIONS (20)
  - Intestinal perforation [Fatal]
  - Renal impairment [Fatal]
  - Febrile neutropenia [Fatal]
  - Neutropenia [Fatal]
  - Post transplant lymphoproliferative disorder [Fatal]
  - Dysphagia [Fatal]
  - Arthralgia [Fatal]
  - Hypoalbuminaemia [Fatal]
  - Cholestasis [Fatal]
  - Oropharyngeal pain [Fatal]
  - Necrotic lymphadenopathy [Fatal]
  - Sepsis [Fatal]
  - Clostridium difficile infection [Fatal]
  - Pyrexia [Fatal]
  - Diarrhoea [Fatal]
  - Abdominal pain [Fatal]
  - Fungal infection [Fatal]
  - Bronchopulmonary aspergillosis [Fatal]
  - Systemic candida [Fatal]
  - Peritonitis [Fatal]
